FAERS Safety Report 8570117 (Version 3)
Quarter: 2013Q3

REPORT INFORMATION
  Report Type: Spontaneous
  Country: US (occurrence: US)
  Receive Date: 20120520
  Receipt Date: 20130826
  Transmission Date: 20140515
  Serious: Yes (Hospitalization)
  Sender: FDA-Public Use
  Company Number: US-AMGEN-USASP2012030255

PATIENT
  Age: 64 Year
  Sex: Female

DRUGS (2)
  1. ENBREL [Suspect]
     Indication: RHEUMATOID ARTHRITIS
     Dosage: 50 MG, QWK
     Route: 065
     Dates: start: 200707
  2. ENBREL [Suspect]
     Dosage: 50 MG, QWK
     Route: 065
     Dates: start: 20070702

REACTIONS (16)
  - Fall [Unknown]
  - Ankle fracture [Recovered/Resolved]
  - Antiphospholipid syndrome [Not Recovered/Not Resolved]
  - Deep vein thrombosis [Recovered/Resolved]
  - Osteopenia [Not Recovered/Not Resolved]
  - Cataract [Not Recovered/Not Resolved]
  - Sinus perforation [Unknown]
  - Bone loss [Unknown]
  - Endodontic procedure [Unknown]
  - Artificial crown procedure [Unknown]
  - Pain in extremity [Unknown]
  - Oedema peripheral [Unknown]
  - Injection site bruising [Not Recovered/Not Resolved]
  - Injection site haemorrhage [Not Recovered/Not Resolved]
  - Tooth abscess [Unknown]
  - Injection site pain [Not Recovered/Not Resolved]
